FAERS Safety Report 22333508 (Version 1)
Quarter: 2023Q2

REPORT INFORMATION
  Report Type: Spontaneous
  Country: DE (occurrence: DE)
  Receive Date: 20230517
  Receipt Date: 20230517
  Transmission Date: 20230722
  Serious: Yes (Other)
  Sender: FDA-Public Use
  Company Number: DE-TEVA-2023-DE-2885795

PATIENT
  Age: 47 Year
  Sex: Female

DRUGS (1)
  1. PRIMIDONE [Suspect]
     Active Substance: PRIMIDONE
     Indication: Epilepsy
     Dosage: 1 TABLET 2 TIMES DAY
     Route: 048
     Dates: start: 1980

REACTIONS (8)
  - Pain in extremity [Unknown]
  - Pain [Unknown]
  - Arthralgia [Unknown]
  - Motor dysfunction [Unknown]
  - Periarthritis [Unknown]
  - Lipoedema [Unknown]
  - Impaired work ability [Unknown]
  - Fibromyalgia [Unknown]

NARRATIVE: CASE EVENT DATE: 20110101
